FAERS Safety Report 6533605-2 (Version None)
Quarter: 2010Q1

REPORT INFORMATION
  Report Type: 
  Country: None (occurrence: None)
  Receive Date: 20100111
  Receipt Date: 20100105
  Transmission Date: 20100710
  Serious: Yes (Death)
  Sender: FDA-Public Use
  Company Number: US-ASTRAZENECA-2010SE00717

PATIENT
  Age: 63 Year
  Sex: Male

DRUGS (13)
  1. ATENOLOL [Suspect]
     Route: 048
  2. AMITRIPTYLINE HCL [Suspect]
     Route: 048
  3. OXYCODONE [Suspect]
     Route: 048
  4. PROMETHAZINE [Suspect]
     Route: 048
  5. MIRTAZAPINE [Suspect]
  6. CLONAZEPAM [Suspect]
  7. PRAZOSIN HYDROCHLORIDE [Suspect]
  8. TRAZODONE HCL [Suspect]
  9. NIACIN [Suspect]
  10. PRAVACHOL [Suspect]
  11. GABAPENTIN [Suspect]
  12. UNKNOWN DRUG [Suspect]
  13. VENLAFAXINE [Suspect]

REACTIONS (4)
  - CARDIAC ARREST [None]
  - COMPLETED SUICIDE [None]
  - DRUG TOXICITY [None]
  - RESPIRATORY ARREST [None]
